FAERS Safety Report 17664330 (Version 1)
Quarter: 2020Q2

REPORT INFORMATION
  Report Type: Spontaneous
  Country: US (occurrence: US)
  Receive Date: 20200414
  Receipt Date: 20200414
  Transmission Date: 20200713
  Serious: No
  Sender: FDA-Public Use
  Company Number: US-JNJFOC-20200333694

PATIENT
  Sex: Female

DRUGS (4)
  1. PEPCID AC [Suspect]
     Active Substance: FAMOTIDINE
     Indication: GASTROOESOPHAGEAL REFLUX DISEASE
  2. PEPCID AC [Suspect]
     Active Substance: FAMOTIDINE
     Indication: GASTROENTERITIS EOSINOPHILIC
     Route: 065
  3. PEPCID AC [Suspect]
     Active Substance: FAMOTIDINE
     Indication: ILL-DEFINED DISORDER
  4. PEPCID AC [Suspect]
     Active Substance: FAMOTIDINE
     Indication: MAST CELL ACTIVATION SYNDROME

REACTIONS (3)
  - Product use in unapproved indication [Unknown]
  - Overdose [Unknown]
  - Off label use [Unknown]
